FAERS Safety Report 13987907 (Version 5)
Quarter: 2017Q4

REPORT INFORMATION
  Report Type: Spontaneous
  Country: US (occurrence: US)
  Receive Date: 20170919
  Receipt Date: 20171205
  Transmission Date: 20180321
  Serious: No
  Sender: FDA-Public Use
  Company Number: US-PFIZER INC-2017403589

PATIENT
  Age: 73 Year
  Sex: Female

DRUGS (2)
  1. XELJANZ XR [Suspect]
     Active Substance: TOFACITINIB CITRATE
     Dosage: 11 MG, UNK
     Dates: start: 201707
  2. XELJANZ XR [Suspect]
     Active Substance: TOFACITINIB CITRATE
     Dosage: 11 MG, UNK
     Dates: start: 201708, end: 201710

REACTIONS (6)
  - Pollakiuria [Unknown]
  - Pain in extremity [Unknown]
  - Arthralgia [Unknown]
  - Drug effect decreased [Unknown]
  - Dermatitis acneiform [Unknown]
  - Flatulence [Unknown]

NARRATIVE: CASE EVENT DATE: 2017
